FAERS Safety Report 5426375-2 (Version None)
Quarter: 2007Q3

REPORT INFORMATION
  Report Type: 
  Country: None (occurrence: None)
  Receive Date: 20070731
  Receipt Date: 20070419
  Transmission Date: 20080115
  Serious: No
  Sender: FDA-Public Use
  Company Number: US200704004564

PATIENT
  Age: 48 Year
  Sex: Male

DRUGS (2)
  1. BYETTA [Suspect]
     Indication: TYPE 2 DIABETES MELLITUS
     Dosage: 5 UG, SUBCUTANEOUS, 10 UG, 2/D, SUBCUTANEOUS
     Route: 057
     Dates: start: 20061101, end: 20061201
  2. BYETTA [Suspect]
     Indication: TYPE 2 DIABETES MELLITUS
     Dosage: 5 UG, SUBCUTANEOUS, 10 UG, 2/D, SUBCUTANEOUS
     Route: 057
     Dates: start: 20061201

REACTIONS (5)
  - BLOOD GLUCOSE DECREASED [None]
  - BLOOD GLUCOSE INCREASED [None]
  - INJECTION SITE BRUISING [None]
  - TREMOR [None]
  - WEIGHT DECREASED [None]
